FAERS Safety Report 6845648-X (Version None)
Quarter: 2010Q3

REPORT INFORMATION
  Report Type: 
  Country: None (occurrence: None)
  Receive Date: 20100715
  Receipt Date: 20071009
  Transmission Date: 20110219
  Serious: No
  Sender: FDA-Public Use
  Company Number: US-PFIZER INC-2007070490

PATIENT
  Sex: Female
  Weight: 55.909 kg

DRUGS (5)
  1. CHANTIX [Suspect]
     Indication: SMOKING CESSATION THERAPY
     Dates: start: 20070101
  2. CAPTOPRIL [Concomitant]
  3. DYAZIDE [Concomitant]
  4. OXYCONTIN [Concomitant]
  5. LYRICA [Concomitant]

REACTIONS (5)
  - DRUG DOSE OMISSION [None]
  - DYSGEUSIA [None]
  - INSOMNIA [None]
  - NAUSEA [None]
  - NIGHTMARE [None]
